FAERS Safety Report 4761118-7 (Version None)
Quarter: 2005Q3

REPORT INFORMATION
  Report Type: 
  Country: None (occurrence: None)
  Receive Date: 20050901
  Receipt Date: 20050819
  Transmission Date: 20060218
  Serious: Yes (Other)
  Sender: FDA-Public Use
  Company Number: 2005S1008017

PATIENT
  Age: 59 Year
  Sex: Male

DRUGS (6)
  1. GLIPIZIDE TABLETS, USP (10 MG) [Suspect]
     Indication: DIABETES MELLITUS
     Dosage: 10 MG; QD; PO
     Route: 048
  2. METFORMIN HYDROCHLORIDE (500 MG) [Suspect]
     Indication: DIABETES MELLITUS
     Dosage: 500 MG; QD; PO
     Route: 048
  3. INSULIN [Concomitant]
  4. CLOPIDOGREL BISULFATE [Concomitant]
  5. PAMIPRIL [Concomitant]
  6. LOVASTATIN [Concomitant]

REACTIONS (2)
  - BLINDNESS TRANSIENT [None]
  - BLOOD GLUCOSE INCREASED [None]
